FAERS Safety Report 6069651-5 (Version None)
Quarter: 2009Q1

REPORT INFORMATION
  Report Type: 
  Country: None (occurrence: None)
  Receive Date: 20090209
  Receipt Date: 20090202
  Transmission Date: 20090719
  Serious: Yes (Other)
  Sender: FDA-Public Use
  Company Number: FR-JNJFOC-20090201599

PATIENT
  Age: 41 Year
  Sex: Female

DRUGS (8)
  1. RISPERDAL CONSTA [Suspect]
     Indication: DRUG USE FOR UNKNOWN INDICATION
     Route: 030
  2. EFFEXOR [Concomitant]
  3. TERCIAN [Concomitant]
  4. DEPAKOTE [Concomitant]
  5. HEPTAMYL [Concomitant]
  6. ATARAX [Concomitant]
  7. ISOPTIN [Concomitant]
  8. PARKINANE [Concomitant]

REACTIONS (2)
  - HYPERPROLACTINAEMIA [None]
  - PITUITARY TUMOUR BENIGN [None]
